FAERS Safety Report 20366676 (Version 1)
Quarter: 2022Q1

REPORT INFORMATION
  Report Type: Other
  Country: US (occurrence: US)
  Receive Date: 20220123
  Receipt Date: 20220123
  Transmission Date: 20220423
  Serious: No
  Sender: FDA-Public Use
  Company Number: US-ACORDA-ACO_170426_2021

PATIENT
  Sex: Female

DRUGS (1)
  1. AMPYRA [Suspect]
     Active Substance: DALFAMPRIDINE
     Indication: Product used for unknown indication
     Dosage: 10 MILLIGRAM
     Route: 065
     Dates: start: 20130605

REACTIONS (7)
  - Rash [Unknown]
  - Mood swings [Unknown]
  - Onychomycosis [Unknown]
  - Taste disorder [Unknown]
  - Photosensitivity reaction [Unknown]
  - Dyspepsia [Unknown]
  - Insomnia [Unknown]
